FAERS Safety Report 9183161 (Version 1)
Quarter: 2013Q1

REPORT INFORMATION
  Report Type: Spontaneous
  Country: US (occurrence: US)
  Receive Date: 20130322
  Receipt Date: 20130322
  Transmission Date: 20140127
  Serious: No
  Sender: FDA-Public Use
  Company Number: US-BRISTOL-MYERS SQUIBB COMPANY-16917502

PATIENT
  Age: 76 Year
  Sex: Female

DRUGS (3)
  1. ERBITUX [Suspect]
     Indication: HEAD AND NECK CANCER
     Dosage: 3 TREATMENTS
  2. TAXOL [Concomitant]
  3. 5-FLUOROURACIL [Concomitant]

REACTIONS (2)
  - Stomatitis [Unknown]
  - Lip swelling [Unknown]
